FAERS Safety Report 16250672 (Version 2)
Quarter: 2019Q2

REPORT INFORMATION
  Report Type: Spontaneous
  Country: GB (occurrence: GB)
  Receive Date: 20190429
  Receipt Date: 20190507
  Transmission Date: 20190711
  Serious: Yes (Other)
  Sender: FDA-Public Use
  Company Number: GB-MYLANLABS-2018M1077445

PATIENT
  Age: 59 Year
  Sex: Male

DRUGS (1)
  1. CLOZARIL [Suspect]
     Active Substance: CLOZAPINE
     Indication: SCHIZOPHRENIA
     Dosage: UNK
     Route: 048
     Dates: start: 20150417

REACTIONS (4)
  - Anaemia [Unknown]
  - Leukocytosis [Unknown]
  - Terminal state [Unknown]
  - Neutrophilia [Unknown]

NARRATIVE: CASE EVENT DATE: 20181011
